FAERS Safety Report 7407091-4 (Version None)
Quarter: 2011Q2

REPORT INFORMATION
  Report Type: 
  Country: None (occurrence: None)
  Receive Date: 20110411
  Receipt Date: 20110406
  Transmission Date: 20111010
  Serious: Yes (Other)
  Sender: FDA-Public Use
  Company Number: JP-GENZYME-FABR-1001574

PATIENT
  Sex: Female
  Weight: 67 kg

DRUGS (7)
  1. FABRAZYME [Suspect]
     Indication: FABRY'S DISEASE
     Dosage: 45 MG, Q2W
     Route: 042
     Dates: start: 20100422
  2. ENALAPRIL MALEATE [Concomitant]
     Indication: CARDIAC FAILURE CHRONIC
     Dosage: 2.5 MG, QD
  3. FABRAZYME [Suspect]
     Dosage: 35 MG, Q2W
     Route: 042
     Dates: start: 20091105, end: 20100408
  4. FUROSEMIDE [Concomitant]
     Indication: CARDIAC FAILURE CHRONIC
     Dosage: 20 MG, QD
  5. WARFARIN POTASSIUM [Concomitant]
     Indication: ATRIAL FIBRILLATION
     Dosage: 3 MG, QD
     Dates: end: 20100728
  6. FABRAZYME [Suspect]
     Dosage: 70 MG, Q2W
     Route: 042
     Dates: start: 20050426, end: 20091022
  7. WARFARIN POTASSIUM [Concomitant]
     Dosage: 3.5 MG, QD
     Dates: start: 20100729

REACTIONS (2)
  - AMNESIA [None]
  - CEREBRAL INFARCTION [None]
